FAERS Safety Report 5041557-X (Version None)
Quarter: 2006Q2

REPORT INFORMATION
  Report Type: 
  Country: None (occurrence: None)
  Receive Date: 20060628
  Receipt Date: 20060614
  Transmission Date: 20061013
  Serious: Yes (Other)
  Sender: FDA-Public Use
  Company Number: B0428492A

PATIENT
  Sex: Female

DRUGS (6)
  1. RETROVIR [Suspect]
     Indication: HIV INFECTION
  2. EPIVIR [Suspect]
     Indication: HIV INFECTION
  3. NEVIRAPINE [Suspect]
     Indication: HIV INFECTION
  4. STAVUDINE [Suspect]
     Indication: HIV INFECTION
  5. STEROID (STEROID) [Suspect]
  6. ANTIBIOTICS (ANTIBIOTICS) [Suspect]

REACTIONS (9)
  - ACUTE RESPIRATORY DISTRESS SYNDROME [None]
  - CAESAREAN SECTION [None]
  - CD4 LYMPHOCYTES INCREASED [None]
  - CHORIOAMNIONITIS [None]
  - DRUG EXPOSURE DURING PREGNANCY [None]
  - FUNISITIS [None]
  - NEUTROPENIC SEPSIS [None]
  - PREGNANCY [None]
  - PREMATURE RUPTURE OF MEMBRANES [None]
